FAERS Safety Report 6409671-1 (Version None)
Quarter: 2009Q4

REPORT INFORMATION
  Report Type: 
  Country: None (occurrence: None)
  Receive Date: 20091022
  Receipt Date: 20091019
  Transmission Date: 20100525
  Serious: Yes (Life-Threatening)
  Sender: FDA-Public Use
  Company Number: FR-ASTRAZENECA-2009SE21242

PATIENT
  Age: 32 Year
  Sex: Female

DRUGS (6)
  1. DIPRIVAN [Suspect]
     Indication: INDUCTION OF ANAESTHESIA
     Route: 042
     Dates: start: 20090918, end: 20090918
  2. BLUE PATENTE V GUERBET [Suspect]
     Dates: start: 20090918, end: 20090918
  3. TRACRIUM [Suspect]
     Indication: INDUCTION OF ANAESTHESIA
     Dates: start: 20090918, end: 20090918
  4. CEFAZOLIN [Suspect]
     Indication: INDUCTION OF ANAESTHESIA
     Route: 042
     Dates: start: 20090918, end: 20090918
  5. MIDAZOLAM HCL [Suspect]
     Indication: INDUCTION OF ANAESTHESIA
     Dates: start: 20090918, end: 20090918
  6. SUFENTANIL CITRATE [Suspect]
     Indication: INDUCTION OF ANAESTHESIA
     Route: 042
     Dates: start: 20090918, end: 20090918

REACTIONS (1)
  - ANAPHYLACTIC SHOCK [None]
